FAERS Safety Report 9630236 (Version 2)
Quarter: 2013Q4

REPORT INFORMATION
  Report Type: Spontaneous
  Country: SE (occurrence: SE)
  Receive Date: 20131017
  Receipt Date: 20131017
  Transmission Date: 20140711
  Serious: Yes (Other)
  Sender: FDA-Public Use
  Company Number: SE-ALLERGAN-1312705US

PATIENT
  Age: 47 Year
  Sex: Female

DRUGS (2)
  1. BOTOX [Suspect]
     Indication: SKIN WRINKLING
     Dosage: UNK UNK, SINGLE
     Dates: start: 20100908, end: 20100908
  2. BOTOX [Suspect]
     Dosage: UNK
     Dates: start: 20100818, end: 20100818

REACTIONS (2)
  - Borrelia infection [Unknown]
  - Facial paresis [Unknown]
